FAERS Safety Report 6695704-4 (Version None)
Quarter: 2010Q2

REPORT INFORMATION
  Report Type: 
  Country: None (occurrence: None)
  Receive Date: 20100426
  Receipt Date: 20100416
  Transmission Date: 20101027
  Serious: No
  Sender: FDA-Public Use
  Company Number: 2010BI003523

PATIENT
  Age: 56 Year
  Sex: Female

DRUGS (1)
  1. TYSABRI [Suspect]
     Indication: MULTIPLE SCLEROSIS
     Route: 042
     Dates: start: 20080321, end: 20100401

REACTIONS (3)
  - DRUG INEFFECTIVE [None]
  - RELAPSING-REMITTING MULTIPLE SCLEROSIS [None]
  - SECONDARY PROGRESSIVE MULTIPLE SCLEROSIS [None]
